FAERS Safety Report 12675606 (Version 1)
Quarter: 2016Q3

REPORT INFORMATION
  Report Type: Spontaneous
  Country: US (occurrence: US)
  Receive Date: 20160823
  Receipt Date: 20160823
  Transmission Date: 20161109
  Serious: No
  Sender: FDA-Public Use
  Company Number: US-JAZZ-2016-US-006457

PATIENT
  Sex: Female

DRUGS (18)
  1. XYREM [Suspect]
     Active Substance: SODIUM OXYBATE
     Dosage: 3 G, BID
     Route: 048
     Dates: start: 201505
  2. SERTRALINE HCL [Concomitant]
     Active Substance: SERTRALINE HYDROCHLORIDE
  3. TYLENOL [Concomitant]
     Active Substance: ACETAMINOPHEN
  4. THE ORIGINAL NATURAL HERB COUGH DROPS [Concomitant]
     Active Substance: MENTHOL
  5. NUVIGIL [Concomitant]
     Active Substance: ARMODAFINIL
  6. ASMANEX [Concomitant]
     Active Substance: MOMETASONE FUROATE
  7. VOLTAREN [Concomitant]
     Active Substance: DICLOFENAC SODIUM
  8. PROVENTIL [Concomitant]
     Active Substance: ALBUTEROL
  9. IRON SUPPLEMENT [Concomitant]
     Active Substance: IRON
  10. VITAMIN C [Concomitant]
     Active Substance: ASCORBIC ACID
  11. LEVOTHYROXINE SODIUM. [Concomitant]
     Active Substance: LEVOTHYROXINE SODIUM
  12. LORATADINE. [Concomitant]
     Active Substance: LORATADINE
  13. XYREM [Suspect]
     Active Substance: SODIUM OXYBATE
     Indication: NARCOLEPSY
     Dosage: 2.25 G, BID
     Route: 048
     Dates: start: 201505, end: 201505
  14. VITAMIN B12 [Concomitant]
     Active Substance: CYANOCOBALAMIN
  15. OSTEO-BI-FLEX [Concomitant]
  16. ALBUTEROL. [Concomitant]
     Active Substance: ALBUTEROL
  17. SIMVASTATIN. [Concomitant]
     Active Substance: SIMVASTATIN
  18. VITAMIN D [Concomitant]
     Active Substance: CHOLECALCIFEROL

REACTIONS (1)
  - Fungal infection [Unknown]
